FAERS Safety Report 4822886-9 (Version None)
Quarter: 2005Q4

REPORT INFORMATION
  Report Type: 
  Country: None (occurrence: None)
  Receive Date: 20051108
  Receipt Date: 20051004
  Transmission Date: 20060501
  Serious: Yes (Other)
  Sender: FDA-Public Use
  Company Number: 2005UW14896

PATIENT
  Age: 38 Year
  Sex: Male
  Weight: 99.1 kg

DRUGS (3)
  1. NEXIUM [Suspect]
     Indication: GASTROOESOPHAGEAL REFLUX DISEASE
     Route: 048
     Dates: start: 20050301
  2. DICLOFENAC [Concomitant]
  3. METHOCARBAMOL [Concomitant]

REACTIONS (6)
  - ABDOMINAL PAIN UPPER [None]
  - CEREBROVASCULAR ACCIDENT [None]
  - HYPERTENSION [None]
  - OESOPHAGEAL SPASM [None]
  - SINUS ARRHYTHMIA [None]
  - SINUS BRADYCARDIA [None]
